FAERS Safety Report 5649951-0 (Version None)
Quarter: 2008Q1

REPORT INFORMATION
  Report Type: 
  Country: None (occurrence: None)
  Receive Date: 20080304
  Receipt Date: 20080228
  Transmission Date: 20080703
  Serious: Yes (Other)
  Sender: FDA-Public Use
  Company Number: CA-MERCK-0802CAN00126

PATIENT
  Age: 57 Year
  Sex: Female

DRUGS (5)
  1. SINGULAIR [Suspect]
     Route: 048
  2. FLUTICASONE PROPIONATE AND SALMETEROL XINAFOATE [Suspect]
     Route: 065
  3. FLUTICASONE PROPIONATE [Suspect]
     Route: 065
  4. PREDNISONE [Concomitant]
     Route: 065
  5. ALBUTEROL [Concomitant]
     Route: 065

REACTIONS (5)
  - ACCIDENTAL EXPOSURE [None]
  - ASTHMA [None]
  - INSOMNIA [None]
  - PALPITATIONS [None]
  - WHEEZING [None]
